FAERS Safety Report 9124663 (Version 1)
Quarter: 2013Q1

REPORT INFORMATION
  Report Type: Spontaneous
  Country: US (occurrence: US)
  Receive Date: 20130227
  Receipt Date: 20130227
  Transmission Date: 20140127
  Serious: No
  Sender: FDA-Public Use
  Company Number: US-MYLANLABS-2012S1023403

PATIENT
  Age: 87 Year
  Sex: Female
  Weight: 47.17 kg

DRUGS (16)
  1. PERFOROMIST (FORMOTEROL FUMARATE) INHALATION SOLUTION [Suspect]
     Indication: CHRONIC OBSTRUCTIVE PULMONARY DISEASE
     Route: 055
     Dates: start: 201209
  2. PERFOROMIST (FORMOTEROL FUMARATE) INHALATION SOLUTION [Suspect]
     Indication: CHRONIC OBSTRUCTIVE PULMONARY DISEASE
     Route: 055
     Dates: start: 201209
  3. IPRATROPIUM BROMIDE INHALATION SOLUTION [Suspect]
     Indication: CHRONIC OBSTRUCTIVE PULMONARY DISEASE
     Route: 055
  4. COREG [Concomitant]
  5. ATIVAN [Concomitant]
  6. DIOVAN [Concomitant]
  7. LASIX [Concomitant]
  8. MULTIVITAMINS [Concomitant]
  9. MUCINEX [Concomitant]
  10. FLORASTOR [Concomitant]
  11. PREDNISONE [Concomitant]
  12. PRIMIDONE [Concomitant]
  13. LIPITOR [Concomitant]
  14. DALIRESP [Concomitant]
  15. IPRATROPIUM [Concomitant]
  16. ALBUTEROL [Concomitant]

REACTIONS (3)
  - Headache [Not Recovered/Not Resolved]
  - Eye pain [Recovered/Resolved]
  - Wrong technique in drug usage process [Unknown]
